FAERS Safety Report 14001571 (Version 1)
Quarter: 2017Q3

REPORT INFORMATION
  Report Type: Spontaneous
  Country: US (occurrence: US)
  Receive Date: 20170922
  Receipt Date: 20170922
  Transmission Date: 20171128
  Serious: Yes (Other)
  Sender: FDA-Public Use
  Company Number: US-BRISTOL-MYERS SQUIBB COMPANY-BMS-2017-084249

PATIENT
  Sex: Female

DRUGS (1)
  1. SPRYCEL [Suspect]
     Active Substance: DASATINIB
     Indication: CHRONIC MYELOID LEUKAEMIA
     Dosage: 100 MG, QD
     Route: 048

REACTIONS (7)
  - Rheumatoid arthritis [Unknown]
  - Drug dose omission [Unknown]
  - Myalgia [Unknown]
  - Bone pain [Unknown]
  - Vomiting [Unknown]
  - Alopecia [Unknown]
  - Nausea [Unknown]
